FAERS Safety Report 23163331 (Version 1)
Quarter: 2023Q4

REPORT INFORMATION
  Report Type: Report from Study
  Country: ZA (occurrence: ZA)
  Receive Date: 20231109
  Receipt Date: 20231109
  Transmission Date: 20240109
  Serious: Yes (Other)
  Sender: FDA-Public Use
  Company Number: ZA-ABBVIE-5484018

PATIENT
  Age: 74 Year
  Sex: Male

DRUGS (3)
  1. OZURDEX [Suspect]
     Active Substance: DEXAMETHASONE
     Indication: Type 1 diabetes mellitus
     Dosage: EVERY 4 TO 6 MONTHS?0.7MG
     Dates: start: 20220527
  2. OZURDEX [Suspect]
     Active Substance: DEXAMETHASONE
     Indication: Diabetic retinopathy
  3. OZURDEX [Suspect]
     Active Substance: DEXAMETHASONE
     Indication: Diabetic retinal oedema

REACTIONS (2)
  - Visual impairment [Unknown]
  - Oedema [Unknown]

NARRATIVE: CASE EVENT DATE: 20231103
